FAERS Safety Report 9901559 (Version 2)
Quarter: 2014Q1

REPORT INFORMATION
  Report Type: Spontaneous
  Country: US (occurrence: US)
  Receive Date: 20140217
  Receipt Date: 20140217
  Transmission Date: 20141002
  Serious: No
  Sender: FDA-Public Use
  Company Number: US-GILEAD-2011-0042210

PATIENT
  Sex: Male

DRUGS (5)
  1. LETAIRIS [Suspect]
     Indication: PULMONARY HYPERTENSION
     Route: 048
     Dates: start: 20090303, end: 20110721
  2. LETAIRIS [Suspect]
     Indication: SCLERODERMA
  3. PREDNISONE [Concomitant]
  4. CELLCEPT                           /01275102/ [Concomitant]
  5. CYTOXAN [Concomitant]

REACTIONS (3)
  - Productive cough [Recovered/Resolved]
  - Nasal congestion [Recovered/Resolved]
  - Dyspnoea [Recovered/Resolved]
